FAERS Safety Report 7078956-0 (Version None)
Quarter: 2010Q4

REPORT INFORMATION
  Report Type: 
  Country: None (occurrence: None)
  Receive Date: 20101102
  Receipt Date: 20101025
  Transmission Date: 20110411
  Serious: No
  Sender: FDA-Public Use
  Company Number: US-PFIZER INC-2010136070

PATIENT

DRUGS (2)
  1. GEODON [Suspect]
     Dosage: UNK
  2. SUDAFED 12 HOUR [Interacting]
     Dosage: UNK

REACTIONS (2)
  - DRUG INTERACTION [None]
  - TACHYCARDIA [None]
